FAERS Safety Report 12771359 (Version 1)
Quarter: 2016Q3

REPORT INFORMATION
  Report Type: Spontaneous
  Country: US (occurrence: US)
  Receive Date: 20160922
  Receipt Date: 20160922
  Transmission Date: 20161109
  Serious: No
  Sender: FDA-Public Use
  Company Number: US-TARO-2016TAR00476

PATIENT
  Age: 30 Year
  Sex: Female
  Weight: 56.69 kg

DRUGS (3)
  1. SINGULAIR [Concomitant]
     Active Substance: MONTELUKAST SODIUM
  2. LORATADINE SYRUP (LORATADINE ORAL SOLUTION USP) 5MG/5ML [Suspect]
     Active Substance: LORATADINE
     Dosage: UNK UNK, ONCE
     Route: 045
     Dates: start: 20160521, end: 20160521
  3. MAGNESIUM [Concomitant]
     Active Substance: MAGNESIUM

REACTIONS (4)
  - Rhinorrhoea [Not Recovered/Not Resolved]
  - Off label use [Recovered/Resolved]
  - Throat irritation [Not Recovered/Not Resolved]
  - Nasal discomfort [Not Recovered/Not Resolved]

NARRATIVE: CASE EVENT DATE: 20160521
